FAERS Safety Report 23377061 (Version 2)
Quarter: 2024Q1

REPORT INFORMATION
  Report Type: Report from Study
  Country: US (occurrence: US)
  Receive Date: 20240108
  Receipt Date: 20240131
  Transmission Date: 20240409
  Serious: Yes (Death, Hospitalization, Other)
  Sender: FDA-Public Use
  Company Number: US-ABBVIE-5573672

PATIENT
  Sex: Male

DRUGS (1)
  1. RINVOQ [Suspect]
     Active Substance: UPADACITINIB
     Indication: Colitis ulcerative
     Route: 048
     Dates: start: 20231025, end: 20231228

REACTIONS (6)
  - Death [Fatal]
  - Fall [Unknown]
  - Oesophageal ulcer haemorrhage [Not Recovered/Not Resolved]
  - Hepatic neoplasm [Unknown]
  - Pneumonia [Unknown]
  - Large intestine infection [Unknown]

NARRATIVE: CASE EVENT DATE: 20230101
